FAERS Safety Report 7167383-3 (Version None)
Quarter: 2010Q4

REPORT INFORMATION
  Report Type: 
  Country: None (occurrence: None)
  Receive Date: 20101216
  Receipt Date: 20091103
  Transmission Date: 20110411
  Serious: No
  Sender: FDA-Public Use
  Company Number: A0814687A

PATIENT
  Sex: Female

DRUGS (3)
  1. NICOTINE POLACRILEX [Suspect]
  2. NICOTINE POLACRILEX [Suspect]
  3. NICODERM CQ [Suspect]

REACTIONS (4)
  - HYPERSENSITIVITY [None]
  - MALAISE [None]
  - THROAT TIGHTNESS [None]
  - URTICARIA [None]
